FAERS Safety Report 5814326-8 (Version None)
Quarter: 2008Q3

REPORT INFORMATION
  Report Type: 
  Country: None (occurrence: None)
  Receive Date: 20080715
  Receipt Date: 20080709
  Transmission Date: 20090109
  Serious: Yes (Other)
  Sender: FDA-Public Use
  Company Number: 2008S1010384

PATIENT
  Age: 67 Year
  Sex: Female

DRUGS (4)
  1. LORAZEPAM [Suspect]
     Indication: ANXIETY
     Dosage: 1 MG; TWICE A DAY; ORAL
     Route: 048
     Dates: end: 20080101
  2. LORAZEPAM [Suspect]
     Indication: SLEEP DISORDER
     Dosage: 1 MG; TWICE A DAY; ORAL
     Route: 048
     Dates: end: 20080101
  3. LIPITOR [Concomitant]
  4. ASPIRIN [Concomitant]

REACTIONS (11)
  - AGORAPHOBIA [None]
  - ASTHENIA [None]
  - CONFUSIONAL STATE [None]
  - DRUG INEFFECTIVE [None]
  - DRUG TOLERANCE [None]
  - DRUG TOXICITY [None]
  - DRUG WITHDRAWAL SYNDROME [None]
  - EYE DISORDER [None]
  - NAUSEA [None]
  - TINNITUS [None]
  - URINARY TRACT INFECTION [None]
